FAERS Safety Report 6549131-0 (Version None)
Quarter: 2010Q1

REPORT INFORMATION
  Report Type: 
  Country: None (occurrence: None)
  Receive Date: 20100119
  Receipt Date: 20100112
  Transmission Date: 20100710
  Serious: Yes (Other)
  Sender: FDA-Public Use
  Company Number: 2007SP003954

PATIENT
  Sex: Female

DRUGS (2)
  1. DESLORATADINE [Suspect]
     Indication: DRUG USE FOR UNKNOWN INDICATION
  2. NEOCLARITYN [Concomitant]

REACTIONS (4)
  - EPISTAXIS [None]
  - PRODUCT SUBSTITUTION ISSUE [None]
  - PSORIASIS [None]
  - SWELLING FACE [None]
